FAERS Safety Report 5788940-2 (Version None)
Quarter: 2008Q2

REPORT INFORMATION
  Report Type: 
  Country: None (occurrence: None)
  Receive Date: 20080626
  Receipt Date: 20080109
  Transmission Date: 20081010
  Serious: No
  Sender: FDA-Public Use
  Company Number: US-ASTRAZENECA-2007UW28114

PATIENT
  Age: 80 Year
  Sex: Female
  Weight: 40.8 kg

DRUGS (9)
  1. PULMICORT RESPULES [Suspect]
     Indication: ASTHMA
     Route: 055
     Dates: start: 20071206
  2. ALBUTEROL [Concomitant]
  3. ARICEPT [Concomitant]
  4. CILOSTAZOL [Concomitant]
  5. SYNTHROID [Concomitant]
  6. VITAMINS [Concomitant]
  7. FOSAMAX [Concomitant]
  8. OXYGEN [Concomitant]
  9. METHYLPREDNISOLONE [Concomitant]

REACTIONS (3)
  - ASTHMA [None]
  - DEVICE MALFUNCTION [None]
  - WHEEZING [None]
